FAERS Safety Report 20818500 (Version 2)
Quarter: 2024Q2

REPORT INFORMATION
  Report Type: Spontaneous
  Country: US (occurrence: US)
  Receive Date: 20220512
  Receipt Date: 20240426
  Transmission Date: 20240716
  Serious: No
  Sender: FDA-Public Use
  Company Number: US-PFIZER INC-202200086049

PATIENT
  Age: 66 Year
  Sex: Female
  Weight: 82 kg

DRUGS (1)
  1. PENICILLIN G BENZATHINE\PENICILLIN G PROCAINE [Suspect]
     Active Substance: PENICILLIN G BENZATHINE\PENICILLIN G PROCAINE
     Dosage: UNK

REACTIONS (2)
  - Eye swelling [Unknown]
  - Drug hypersensitivity [Unknown]
